FAERS Safety Report 8119010-6 (Version None)
Quarter: 2012Q1

REPORT INFORMATION
  Report Type: 
  Country: None (occurrence: None)
  Receive Date: 20120207
  Receipt Date: 20120125
  Transmission Date: 20120608
  Serious: Yes (Hospitalization)
  Sender: FDA-Public Use
  Company Number: US-ELI_LILLY_AND_COMPANY-US201109005480

PATIENT
  Sex: Female

DRUGS (7)
  1. FORTEO [Suspect]
     Dosage: 20 UG, QD
  2. TUMS                               /00193601/ [Concomitant]
     Indication: DYSPEPSIA
  3. PLAVIX [Concomitant]
  4. FORTEO [Suspect]
     Dosage: 20 UG, QD
  5. VITAMIN D [Concomitant]
     Dosage: 2000 IU, QD
  6. FORTEO [Suspect]
     Indication: OSTEOPOROSIS
     Dosage: 20 UG, QD
     Dates: start: 20110816
  7. FORTEO [Suspect]
     Dosage: 20 UG, QD

REACTIONS (12)
  - HIATUS HERNIA [None]
  - INJECTION SITE PAIN [None]
  - CONTUSION [None]
  - MUSCULOSKELETAL PAIN [None]
  - VITAMIN D DECREASED [None]
  - ARTHRALGIA [None]
  - BREAST PAIN [None]
  - PAIN IN EXTREMITY [None]
  - DYSPEPSIA [None]
  - FEELING ABNORMAL [None]
  - GASTRIC PERFORATION [None]
  - DECREASED APPETITE [None]
